FAERS Safety Report 6424738-X (Version None)
Quarter: 2009Q4

REPORT INFORMATION
  Report Type: 
  Country: None (occurrence: None)
  Receive Date: 20091029
  Receipt Date: 20090625
  Transmission Date: 20100525
  Serious: Yes (Other)
  Sender: FDA-Public Use
  Company Number: 199738USA

PATIENT
  Age: 41 Year
  Sex: Female

DRUGS (1)
  1. CLONAZEPAM [Suspect]
     Dosage: 4 MG, ORAL
     Route: 048

REACTIONS (2)
  - BLOOD URINE PRESENT [None]
  - DRUG WITHDRAWAL CONVULSIONS [None]
